FAERS Safety Report 8985325 (Version 1)
Quarter: 2012Q4

REPORT INFORMATION
  Report Type: 
  Country: DE (occurrence: DE)
  Receive Date: 20121226
  Receipt Date: 20121226
  Transmission Date: 20130627
  Serious: Yes (Hospitalization)
  Sender: FDA-Public Use
  Company Number: DE-BRISTOL-MYERS SQUIBB COMPANY-17108994

PATIENT
  Age: 56 Year
  Sex: Male

DRUGS (6)
  1. ORENCIA [Suspect]
     Indication: RHEUMATOID ARTHRITIS
     Route: 042
     Dates: start: 20121024
  2. DECORTIN-H [Concomitant]
  3. VIGANTOLETTEN [Concomitant]
  4. L-THYROXINE [Concomitant]
  5. OMEPRAZOLE [Concomitant]
  6. DELIX [Concomitant]

REACTIONS (2)
  - Liver function test abnormal [Recovering/Resolving]
  - Spinal pain [Unknown]
